FAERS Safety Report 4354363-6 (Version None)
Quarter: 2004Q2

REPORT INFORMATION
  Report Type: 
  Country: None (occurrence: None)
  Receive Date: 20040503
  Receipt Date: 20040421
  Transmission Date: 20050107
  Serious: Yes (Hospitalization)
  Sender: FDA-Public Use
  Company Number: 2004UW06631

PATIENT
  Sex: Male

DRUGS (1)
  1. CASODEX [Suspect]
     Dosage: 150 MG DAILY PO
     Route: 048
     Dates: start: 20030301

REACTIONS (3)
  - ACUTE PULMONARY OEDEMA [None]
  - ANGINA PECTORIS [None]
  - CARDIAC FAILURE CONGESTIVE [None]
